FAERS Safety Report 4701151-4 (Version None)
Quarter: 2005Q2

REPORT INFORMATION
  Report Type: 
  Country: None (occurrence: None)
  Receive Date: 20050628
  Receipt Date: 20050616
  Transmission Date: 20051028
  Serious: Yes (Hospitalization)
  Sender: FDA-Public Use
  Company Number: JP-GLAXOSMITHKLINE-B0384756A

PATIENT
  Age: 58 Year
  Sex: Male

DRUGS (7)
  1. EPIVIR [Suspect]
     Indication: ACQUIRED IMMUNODEFICIENCY SYNDROME
     Dosage: 150MG TWICE PER DAY
     Route: 048
     Dates: start: 20000719
  2. ZERIT [Suspect]
     Indication: ACQUIRED IMMUNODEFICIENCY SYNDROME
     Dosage: 40MG TWICE PER DAY
     Route: 048
     Dates: start: 20000804
  3. VIRACEPT [Suspect]
     Indication: ACQUIRED IMMUNODEFICIENCY SYNDROME
     Dosage: 1250MG TWICE PER DAY
     Route: 048
     Dates: start: 20001016, end: 20040915
  4. REYATAZ [Concomitant]
     Indication: ACQUIRED IMMUNODEFICIENCY SYNDROME
     Route: 048
     Dates: start: 20040916
  5. RENIVACE [Concomitant]
     Indication: MYOCARDIAL INFARCTION
     Dosage: 2.5MG PER DAY
     Route: 048
     Dates: start: 20040615
  6. SIGMART [Concomitant]
     Indication: MYOCARDIAL INFARCTION
     Dosage: 5MG TWICE PER DAY
     Route: 048
     Dates: start: 20040615
  7. ACETYLSALICYLIC ACID SRT [Concomitant]
     Indication: MYOCARDIAL INFARCTION
     Dosage: 81MG PER DAY
     Route: 048
     Dates: start: 20040615

REACTIONS (2)
  - ACUTE MYOCARDIAL INFARCTION [None]
  - CHEST PAIN [None]
